FAERS Safety Report 5626204-8 (Version None)
Quarter: 2008Q1

REPORT INFORMATION
  Report Type: 
  Country: None (occurrence: None)
  Receive Date: 20080214
  Receipt Date: 20080211
  Transmission Date: 20080703
  Serious: Yes (Other)
  Sender: FDA-Public Use
  Company Number: A0708683A

PATIENT
  Age: 51 Year
  Sex: Male

DRUGS (5)
  1. FLOVENT [Suspect]
     Indication: CHRONIC OBSTRUCTIVE PULMONARY DISEASE
     Dosage: 1PUFF TWICE PER DAY
     Route: 055
     Dates: start: 20000101
  2. SPIRIVA [Concomitant]
  3. FORADIL [Concomitant]
  4. ALBUTEROL [Concomitant]
  5. ENABLEX [Concomitant]

REACTIONS (5)
  - DRUG INEFFECTIVE [None]
  - EXPIRED DRUG ADMINISTERED [None]
  - MUSCLE INJURY [None]
  - NERVE INJURY [None]
  - NEUROPATHY PERIPHERAL [None]
